FAERS Safety Report 11581275 (Version 1)
Quarter: 2015Q4

REPORT INFORMATION
  Report Type: Spontaneous
  Country: US (occurrence: US)
  Receive Date: 20151001
  Receipt Date: 20151001
  Transmission Date: 20160304
  Serious: No
  Sender: FDA-Public Use
  Company Number: US-ROCHE-703670

PATIENT
  Sex: Female

DRUGS (5)
  1. TRAZODONE [Concomitant]
     Active Substance: TRAZODONE HYDROCHLORIDE
     Indication: DEPRESSION
     Route: 065
  2. PROZAC [Concomitant]
     Active Substance: FLUOXETINE HYDROCHLORIDE
     Indication: DEPRESSION
     Route: 065
  3. PEGASYS [Suspect]
     Active Substance: PEGINTERFERON ALFA-2A
     Indication: HEPATITIS C
     Dosage: PRE-FILLED SYRINGE
     Route: 065
  4. RIBASPHERE [Suspect]
     Active Substance: RIBAVIRIN
     Indication: HEPATITIS C
     Dosage: DIVIDED DOSES
     Route: 065
  5. ABILIFY [Concomitant]
     Active Substance: ARIPIPRAZOLE
     Indication: DEPRESSION
     Route: 065

REACTIONS (2)
  - Fatigue [Not Recovered/Not Resolved]
  - Depression [Not Recovered/Not Resolved]

NARRATIVE: CASE EVENT DATE: 20100425
